FAERS Safety Report 15857936 (Version 1)
Quarter: 2019Q1

REPORT INFORMATION
  Report Type: Spontaneous
  Country: US (occurrence: US)
  Receive Date: 20190123
  Receipt Date: 20190123
  Transmission Date: 20190417
  Serious: No
  Sender: FDA-Public Use
  Company Number: None

PATIENT
  Age: 46 Year
  Sex: Female
  Weight: 78.75 kg

DRUGS (1)
  1. PICATO [Suspect]
     Active Substance: INGENOL MEBUTATE
     Indication: MELANOCYTIC NAEVUS
     Dosage: ?          QUANTITY:3 DOSE TUBES;?
     Route: 061
     Dates: start: 20190121, end: 20190122

REACTIONS (5)
  - Lacrimation increased [None]
  - Eye swelling [None]
  - Eye disorder [None]
  - Eye inflammation [None]
  - Eyelid pain [None]

NARRATIVE: CASE EVENT DATE: 20190122
